FAERS Safety Report 4700875-2 (Version None)
Quarter: 2005Q2

REPORT INFORMATION
  Report Type: 
  Country: None (occurrence: None)
  Receive Date: 20050128
  Receipt Date: 20050128
  Transmission Date: 20051028
  Serious: No
  Sender: FDA-Public Use
  Company Number: None

PATIENT
  Sex: Male
  Weight: 97.5234 kg

DRUGS (2)
  1. GENERIC ULTRAM [Suspect]
     Indication: OSTEOARTHRITIS
     Dosage: 50 MG 4-6 HRS PRN
  2. GENERIC ULTRAM [Suspect]
     Indication: PAIN MANAGEMENT
     Dosage: 50 MG 4-6 HRS PRN

REACTIONS (2)
  - DRUG EFFECT DECREASED [None]
  - THERAPEUTIC RESPONSE UNEXPECTED WITH DRUG SUBSTITUTION [None]
